FAERS Safety Report 20145567 (Version 1)
Quarter: 2021Q4

REPORT INFORMATION
  Report Type: Spontaneous
  Country: CA (occurrence: CA)
  Receive Date: 20211203
  Receipt Date: 20211203
  Transmission Date: 20220303
  Serious: Yes (Hospitalization)
  Sender: FDA-Public Use
  Company Number: CA-TEVA-2021-CA-1982835

PATIENT
  Age: 69 Year
  Sex: Female

DRUGS (11)
  1. CARBOPLATIN [Suspect]
     Active Substance: CARBOPLATIN
     Indication: Thyroid cancer
     Route: 065
  2. PACLITAXEL [Suspect]
     Active Substance: PACLITAXEL
     Indication: Thyroid cancer
     Route: 065
  3. CALCITRIOL [Concomitant]
     Active Substance: CALCITRIOL
  4. CODEINE [Concomitant]
     Active Substance: CODEINE
  5. DEXAMETHASONE [Concomitant]
     Active Substance: DEXAMETHASONE
  6. ESOMEPRAZOLE [Concomitant]
     Active Substance: ESOMEPRAZOLE
     Route: 065
  7. GLYCOPYRROLATE[GLYCOPYRRONIUM BROMIDE] [Concomitant]
  8. LEVOTHYROXINE [Concomitant]
     Active Substance: LEVOTHYROXINE
  9. LIDOCAINE [Concomitant]
     Active Substance: LIDOCAINE
  10. ONDANSETRON [Concomitant]
     Active Substance: ONDANSETRON
  11. TUMS [Concomitant]
     Active Substance: CALCIUM CARBONATE

REACTIONS (6)
  - Anaemia [Unknown]
  - Culture urine positive [Unknown]
  - Febrile neutropenia [Unknown]
  - Oral candidiasis [Unknown]
  - Pneumonia [Unknown]
  - Staphylococcal infection [Unknown]
